FAERS Safety Report 7965475-X (Version None)
Quarter: 2011Q4

REPORT INFORMATION
  Report Type: 
  Country: None (occurrence: None)
  Receive Date: 20111206
  Receipt Date: 20111206
  Transmission Date: 20120403
  Serious: Yes (Hospitalization)
  Sender: FDA-Public Use
  Company Number: None

PATIENT
  Age: 57 Year
  Sex: Female
  Weight: 50.5761 kg

DRUGS (10)
  1. MIRALAX [Concomitant]
  2. ULTRAFLEX GEL [Concomitant]
  3. LINIFANIB [Suspect]
     Indication: COLON CANCER
     Dosage: ORAL 17.5MG DAILY
     Route: 048
     Dates: start: 20111118, end: 20111123
  4. LEXAPRO [Concomitant]
  5. PHENERGAN [Concomitant]
  6. OXYCODONE HCL [Concomitant]
  7. SENOKOT [Concomitant]
  8. NEXIUM [Concomitant]
  9. OXYCONTIN [Concomitant]
  10. IBUPROFEN (ADVIL) [Concomitant]

REACTIONS (1)
  - BACK PAIN [None]
